FAERS Safety Report 15058978 (Version 1)
Quarter: 2018Q2

REPORT INFORMATION
  Report Type: Spontaneous
  Country: US (occurrence: US)
  Receive Date: 20180604
  Receipt Date: 20180604
  Transmission Date: 20180711
  Serious: Yes (Other)
  Sender: FDA-Public Use
  Company Number: None

PATIENT
  Age: 52 Year
  Sex: Female

DRUGS (1)
  1. AMPYRA [Suspect]
     Active Substance: DALFAMPRIDINE
     Indication: PROSTATITIS
     Dosage: ?          OTHER FREQUENCY:WKLY FOR 6 WKS;?
     Route: 058

REACTIONS (2)
  - Joint swelling [None]
  - Peripheral swelling [None]
